FAERS Safety Report 16457803 (Version 2)
Quarter: 2019Q3

REPORT INFORMATION
  Report Type: Spontaneous
  Country: US (occurrence: US)
  Receive Date: 20190620
  Receipt Date: 20190722
  Transmission Date: 20191004
  Serious: No
  Sender: FDA-Public Use
  Company Number: US-PFIZER INC-2018228387

PATIENT
  Age: 68 Year
  Sex: Male

DRUGS (2)
  1. MYSOLINE [Concomitant]
     Active Substance: PRIMIDONE
     Dosage: 50 MG, UNK
  2. DILANTIN [Suspect]
     Active Substance: PHENYTOIN
     Indication: EPILEPSY
     Dosage: 100 MG, FIVE TIMES A DAY
     Dates: start: 1968

REACTIONS (1)
  - Off label use [Unknown]
